FAERS Safety Report 21710684 (Version 6)
Quarter: 2023Q2

REPORT INFORMATION
  Report Type: Spontaneous
  Country: US (occurrence: US)
  Receive Date: 20221212
  Receipt Date: 20230615
  Transmission Date: 20230722
  Serious: No
  Sender: FDA-Public Use
  Company Number: US-BRISTOL-MYERS SQUIBB COMPANY-2022-150965

PATIENT
  Age: 73 Year
  Sex: Female

DRUGS (1)
  1. REVLIMID [Suspect]
     Active Substance: LENALIDOMIDE
     Indication: Plasma cell myeloma
     Dosage: FREQUENCY: 1 CAPSULE BY MOUTH (10MG) DAILY ON DAYS 1 THROUGH 14 OF EVERY 21 DAY CYCLE
     Route: 048
     Dates: start: 20221008

REACTIONS (10)
  - Constipation [Unknown]
  - Dizziness [Unknown]
  - Neck pain [Unknown]
  - Off label use [Unknown]
  - Laboratory test abnormal [Unknown]
  - Headache [Unknown]
  - Balance disorder [Unknown]
  - Muscle spasms [Unknown]
  - Nerve injury [Unknown]
  - Myalgia [Unknown]
